FAERS Safety Report 5534691-9 (Version None)
Quarter: 2007Q4

REPORT INFORMATION
  Report Type: 
  Country: None (occurrence: None)
  Receive Date: 20071205
  Receipt Date: 20071130
  Transmission Date: 20080405
  Serious: Yes (Hospitalization, Other)
  Sender: FDA-Public Use
  Company Number: US-WYE-H00505007

PATIENT
  Sex: Male
  Weight: 88.08 kg

DRUGS (8)
  1. TORISEL [Suspect]
     Indication: RENAL CELL CARCINOMA STAGE UNSPECIFIED
     Route: 042
     Dates: start: 20070808, end: 20071003
  2. TOPROL-XL [Concomitant]
     Indication: CARDIAC DISORDER
     Route: 048
  3. SENOKOT [Concomitant]
     Indication: CONSTIPATION
     Dosage: AS NEEDED FOR CONSTIPATION
     Route: 065
  4. ZOMETA [Concomitant]
     Indication: METASTASIS
     Route: 042
  5. OXYCODONE HCL [Concomitant]
     Indication: PAIN
     Dosage: 5MG AS NEEDED FOR PAIN
     Route: 048
  6. COLACE [Concomitant]
     Indication: CONSTIPATION
     Dosage: AS NEEDED FOR CONSTIPATION
     Route: 065
  7. PROZAC [Concomitant]
     Indication: MAJOR DEPRESSION
     Route: 048
  8. OXYCONTIN [Concomitant]
     Indication: PAIN
     Route: 048

REACTIONS (2)
  - ANAEMIA [None]
  - PNEUMONITIS [None]
